FAERS Safety Report 7942553-2 (Version None)
Quarter: 2011Q4

REPORT INFORMATION
  Report Type: 
  Country: None (occurrence: None)
  Receive Date: 20111128
  Receipt Date: 20111117
  Transmission Date: 20120403
  Serious: Yes (Death)
  Sender: FDA-Public Use
  Company Number: FR-GLAXOSMITHKLINE-B0764195B

PATIENT

DRUGS (1)
  1. ALBUTEROL [Suspect]
     Indication: FOETAL EXPOSURE TIMING UNSPECIFIED
     Dosage: 1SUP SINGLE DOSE
     Route: 064
     Dates: start: 20060101, end: 20060101

REACTIONS (2)
  - NEONATAL ANOXIA [None]
  - FOETAL EXPOSURE DURING PREGNANCY [None]
